FAERS Safety Report 5401691-9 (Version None)
Quarter: 2007Q3

REPORT INFORMATION
  Report Type: 
  Country: None (occurrence: None)
  Receive Date: 20070731
  Receipt Date: 20070719
  Transmission Date: 20080115
  Serious: Yes (Other)
  Sender: FDA-Public Use
  Company Number: US-PFIZER INC-2007060842

PATIENT

DRUGS (1)
  1. CHANTIX [Suspect]

REACTIONS (5)
  - DYSKINESIA [None]
  - LOSS OF CONTROL OF LEGS [None]
  - MIGRAINE [None]
  - NAUSEA [None]
  - VOMITING [None]
